FAERS Safety Report 5480847-3 (Version None)
Quarter: 2007Q4

REPORT INFORMATION
  Report Type: 
  Country: None (occurrence: None)
  Receive Date: 20071009
  Receipt Date: 20070924
  Transmission Date: 20080405
  Serious: No
  Sender: FDA-Public Use
  Company Number: US-BOEHRINGER INGELHEIM PHARMACEUTICALS, INC.-2007-BP-21633BP

PATIENT
  Age: 67 Year
  Sex: Male

DRUGS (4)
  1. FLOMAX [Suspect]
     Indication: BENIGN PROSTATIC HYPERPLASIA
     Route: 048
     Dates: start: 20060101
  2. AVODART [Concomitant]
  3. NEXIUM [Concomitant]
  4. ZANTAC [Concomitant]

REACTIONS (3)
  - DYSPHONIA [None]
  - GASTROOESOPHAGEAL REFLUX DISEASE [None]
  - INCREASED UPPER AIRWAY SECRETION [None]
